FAERS Safety Report 20018731 (Version 1)
Quarter: 2021Q4

REPORT INFORMATION
  Report Type: Spontaneous
  Country: US (occurrence: None)
  Receive Date: 20211101
  Receipt Date: 20211101
  Transmission Date: 20220303
  Serious: No
  Sender: FDA-Public Use
  Company Number: 2021A772718

PATIENT
  Age: 72 Year
  Sex: Female
  Weight: 114.8 kg

DRUGS (3)
  1. TICAGRELOR [Suspect]
     Active Substance: TICAGRELOR
     Indication: Acute coronary syndrome
     Route: 048
     Dates: start: 20210903
  2. ASPIRIN [Concomitant]
     Active Substance: ASPIRIN
     Dosage: 81.0MG UNKNOWN
     Route: 065
  3. COQ [Concomitant]
     Route: 065

REACTIONS (1)
  - Breathing-related sleep disorder [Not Recovered/Not Resolved]

NARRATIVE: CASE EVENT DATE: 20210910
